FAERS Safety Report 6257174-X (Version None)
Quarter: 2009Q3

REPORT INFORMATION
  Report Type: 
  Country: None (occurrence: None)
  Receive Date: 20090706
  Receipt Date: 20090625
  Transmission Date: 20100115
  Serious: Yes (Other)
  Sender: FDA-Public Use
  Company Number: CA-TEVA-193994USA

PATIENT
  Sex: Female
  Weight: 54.026 kg

DRUGS (1)
  1. AVIANE TABLET, ETHINYLESTRADIOL W/LEVONORGESTREL [Suspect]
     Indication: CONTRACEPTION
     Dosage: ONE DAILY
     Route: 048
     Dates: end: 20090316

REACTIONS (2)
  - ABORTION SPONTANEOUS [None]
  - PREGNANCY ON ORAL CONTRACEPTIVE [None]
